FAERS Safety Report 4811311-X (Version None)
Quarter: 2005Q4

REPORT INFORMATION
  Report Type: 
  Country: None (occurrence: None)
  Receive Date: 20051026
  Receipt Date: 20051026
  Transmission Date: 20060501
  Serious: No
  Sender: FDA-Public Use
  Company Number: None

PATIENT
  Sex: Female
  Weight: 83.4619 kg

DRUGS (2)
  1. PAROXETINE  10 MG [Suspect]
     Indication: HYPERTENSION
     Dosage: 50 MG DAILY PO
     Route: 048
  2. NORPRAMIN [Suspect]
     Indication: DEPRESSION
     Dosage: 10 MG DAILY PO
     Route: 048

REACTIONS (2)
  - DRUG EFFECT DECREASED [None]
  - RASH [None]
